FAERS Safety Report 6457188-0 (Version None)
Quarter: 2009Q4

REPORT INFORMATION
  Report Type: 
  Country: None (occurrence: None)
  Receive Date: 20091125
  Receipt Date: 20091119
  Transmission Date: 20100525
  Serious: Yes (Other)
  Sender: FDA-Public Use
  Company Number: CH-GILEAD-2009-0025328

PATIENT
  Sex: Male
  Weight: 72.2 kg

DRUGS (2)
  1. TRUVADA [Suspect]
     Indication: HIV INFECTION
     Route: 048
     Dates: start: 20081107, end: 20091102
  2. STOCRIN [Concomitant]
     Indication: HIV INFECTION
     Route: 048
     Dates: start: 20081107

REACTIONS (3)
  - HAEMATURIA [None]
  - IGA NEPHROPATHY [None]
  - RENAL FAILURE [None]
